FAERS Safety Report 19559726 (Version 1)
Quarter: 2021Q3

REPORT INFORMATION
  Report Type: Spontaneous
  Country: US (occurrence: US)
  Receive Date: 20210716
  Receipt Date: 20210716
  Transmission Date: 20211014
  Serious: Yes (Other)
  Sender: FDA-Public Use
  Company Number: US-ROCHE-2774272

PATIENT
  Age: 35 Year
  Sex: Female

DRUGS (1)
  1. XELODA [Suspect]
     Active Substance: CAPECITABINE
     Indication: BREAST CANCER STAGE II
     Dosage: FREQUENCY: 2 WEEKS ON, 1 WEEK OFF FOR TREATMENT
     Route: 048
     Dates: start: 20190415, end: 20190928

REACTIONS (15)
  - Neuropathy peripheral [Unknown]
  - Oral candidiasis [Unknown]
  - Haematoma [Unknown]
  - Arthritis [Unknown]
  - Insomnia [Unknown]
  - Memory impairment [Unknown]
  - Decreased appetite [Unknown]
  - Rib fracture [Unknown]
  - Palmar-plantar erythrodysaesthesia syndrome [Unknown]
  - Stomatitis [Unknown]
  - Diarrhoea [Unknown]
  - Loss of consciousness [Unknown]
  - Respiratory disorder [Unknown]
  - Bone density abnormal [Unknown]
  - Weight decreased [Unknown]

NARRATIVE: CASE EVENT DATE: 202103
